FAERS Safety Report 20462139 (Version 1)
Quarter: 2022Q1

REPORT INFORMATION
  Report Type: Report from Study
  Country: US (occurrence: US)
  Receive Date: 20220211
  Receipt Date: 20220211
  Transmission Date: 20220424
  Serious: Yes (Death, Other)
  Sender: FDA-Public Use
  Company Number: US-OTSUKA-2022_003329

PATIENT
  Age: 80 Year
  Sex: Female

DRUGS (1)
  1. CEDAZURIDINE\DECITABINE [Suspect]
     Active Substance: CEDAZURIDINE\DECITABINE
     Indication: Myelodysplastic syndrome
     Dosage: 1 DF (35 MG DECITABINE AND 100 MG CEDAZURIDINE) DAILY ON DAYS 1 THROUGH 5 OF EACH 28-DAY CYCLE, QD
     Route: 048

REACTIONS (5)
  - Transfusion [Unknown]
  - Hip fracture [Unknown]
  - Platelet count decreased [Unknown]
  - Death [Fatal]
  - Iron overload [Unknown]

NARRATIVE: CASE EVENT DATE: 20220123
